FAERS Safety Report 12266101 (Version 2)
Quarter: 2016Q2

REPORT INFORMATION
  Report Type: Spontaneous
  Country: NL (occurrence: NL)
  Receive Date: 20160413
  Receipt Date: 20160419
  Transmission Date: 20160815
  Serious: Yes (Hospitalization)
  Sender: FDA-Public Use
  Company Number: NL-009507513-1604NLD001340

PATIENT
  Age: 48 Year
  Sex: Male
  Weight: 102 kg

DRUGS (4)
  1. PERINDOPRIL TOSYLATE [Concomitant]
     Dosage: ONE TABLET ONCE DAILY
     Route: 048
     Dates: start: 20100701
  2. SIMVASTATIN. [Suspect]
     Active Substance: SIMVASTATIN
     Indication: HYPERCHOLESTEROLAEMIA
     Dosage: ONE TABLET ONCE DAILY; EXTRA INFORMATION: 20
     Route: 048
     Dates: start: 20100701
  3. CLOPIDOGREL [Concomitant]
     Active Substance: CLOPIDOGREL BISULFATE
     Dosage: ONE TABLET ONCE DAILY
     Route: 048
     Dates: start: 20100701
  4. NIFEDIPINE. [Concomitant]
     Active Substance: NIFEDIPINE
     Dosage: ONE TABLET ONCE DAILY
     Route: 048
     Dates: start: 20100701

REACTIONS (4)
  - Malaise [Not Recovered/Not Resolved]
  - Impaired healing [Recovering/Resolving]
  - Musculoskeletal pain [Not Recovered/Not Resolved]
  - Back pain [Not Recovered/Not Resolved]

NARRATIVE: CASE EVENT DATE: 20100701
